FAERS Safety Report 7196980-4 (Version None)
Quarter: 2010Q4

REPORT INFORMATION
  Report Type: 
  Country: None (occurrence: None)
  Receive Date: 20101224
  Receipt Date: 20101215
  Transmission Date: 20110411
  Serious: Yes (Other)
  Sender: FDA-Public Use
  Company Number: IT-PFIZER INC-2010151664

PATIENT
  Age: 78 Year
  Sex: Male

DRUGS (3)
  1. TORVAST [Suspect]
     Dosage: 40 MG, 1X/DAY
  2. HUMULIN R [Concomitant]
     Dosage: UNK
  3. CAPOTEN [Concomitant]
     Dosage: UNK

REACTIONS (1)
  - BLOOD PRESSURE INCREASED [None]
